FAERS Safety Report 8202729-6 (Version None)
Quarter: 2012Q1

REPORT INFORMATION
  Report Type: 
  Country: None (occurrence: None)
  Receive Date: 20120312
  Receipt Date: 20120301
  Transmission Date: 20120608
  Serious: Yes (Hospitalization)
  Sender: FDA-Public Use
  Company Number: BR-ASTRAZENECA-2011SE67040

PATIENT
  Age: 90 Year
  Sex: Female
  Weight: 60 kg

DRUGS (6)
  1. OMEPRAZOLE [Suspect]
     Indication: GASTRITIS
     Dosage: BID
     Route: 048
     Dates: end: 20110101
  2. DIOVAN [Concomitant]
     Route: 048
  3. CLONAZEPAM [Concomitant]
     Indication: DEPRESSION
     Route: 048
  4. DEPAKENE [Concomitant]
     Indication: DEPRESSION
     Route: 048
  5. SEROQUEL [Suspect]
     Indication: DEMENTIA ALZHEIMER'S TYPE
     Route: 048
     Dates: start: 20110401
  6. HALDOL [Concomitant]
     Indication: DEPRESSION
     Route: 048

REACTIONS (4)
  - OFF LABEL USE [None]
  - URINARY TRACT INFECTION [None]
  - BONE PAIN [None]
  - DIARRHOEA [None]
